FAERS Safety Report 19564872 (Version 2)
Quarter: 2021Q3

REPORT INFORMATION
  Report Type: Spontaneous
  Country: AU (occurrence: AU)
  Receive Date: 20210716
  Receipt Date: 20210820
  Transmission Date: 20211014
  Serious: No
  Sender: FDA-Public Use
  Company Number: AU-LUPIN PHARMACEUTICALS INC.-2021-11420

PATIENT
  Age: 24 Year
  Sex: Female

DRUGS (1)
  1. EVELYN 150/30 ED TABLET [Suspect]
     Active Substance: ETHINYL ESTRADIOL\LEVONORGESTREL
     Indication: PRODUCT USED FOR UNKNOWN INDICATION
     Dosage: UNK (TAKING 5?6 ACTIVE PILLS)
     Route: 065

REACTIONS (3)
  - Pelvic pain [Unknown]
  - Product substitution issue [Unknown]
  - Fall [Unknown]
